FAERS Safety Report 4404114-1 (Version None)
Quarter: 2004Q3

REPORT INFORMATION
  Report Type: 
  Country: None (occurrence: None)
  Receive Date: 20040719
  Receipt Date: 20040709
  Transmission Date: 20050211
  Serious: Yes (Death)
  Sender: FDA-Public Use
  Company Number: 2004-07-0312

PATIENT
  Age: 52 Year
  Sex: Male

DRUGS (5)
  1. TEMOZOLOMIDE CAPSULES [Suspect]
     Indication: BRAIN NEOPLASM
     Dosage: ORAL
     Route: 048
  2. TEMOZOLOMIDE CAPSULES [Suspect]
     Indication: RECURRENT CANCER
     Dosage: ORAL
     Route: 048
  3. PHENOBARBITAL TAB [Concomitant]
  4. FAMOTIDINE [Concomitant]
  5. DEXAMETHASONE [Concomitant]

REACTIONS (1)
  - DEATH [None]
